FAERS Safety Report 6091639-9 (Version None)
Quarter: 2009Q1

REPORT INFORMATION
  Report Type: 
  Country: None (occurrence: None)
  Receive Date: 20090225
  Receipt Date: 20080314
  Transmission Date: 20090719
  Serious: No
  Sender: FDA-Public Use
  Company Number: A0715532A

PATIENT
  Age: 68 Year
  Sex: Male

DRUGS (3)
  1. VALTREX [Suspect]
     Indication: EYE INFECTION VIRAL
     Dosage: 500MG TWICE PER DAY
     Route: 048
     Dates: end: 20080101
  2. EYE DROPS [Concomitant]
  3. EYE OINTMENT [Concomitant]

REACTIONS (2)
  - DRUG INEFFECTIVE [None]
  - EYE INFECTION [None]
